FAERS Safety Report 5026208-2 (Version None)
Quarter: 2006Q2

REPORT INFORMATION
  Report Type: 
  Country: None (occurrence: None)
  Receive Date: 20060608
  Receipt Date: 20060601
  Transmission Date: 20061013
  Serious: Yes (Life-Threatening)
  Sender: FDA-Public Use
  Company Number: 200612296GDS

PATIENT
  Age: 32 Year
  Sex: Male

DRUGS (6)
  1. APROTININ [Suspect]
     Indication: MITRAL VALVE REPLACEMENT
     Dosage: 5 ML, TOTAL DAILY, NI
  2. ALPRAZOLAM [Concomitant]
  3. FENTANYL [Concomitant]
  4. MIDAZOLAM HCL [Concomitant]
  5. VECURONIUM BROMIDE [Concomitant]
  6. BUPIVACAINE [Suspect]

REACTIONS (10)
  - AIR EMBOLISM [None]
  - ANAPHYLACTIC REACTION [None]
  - BLOOD PRESSURE DECREASED [None]
  - EMBOLISM VENOUS [None]
  - HEART RATE INCREASED [None]
  - HYPERCAPNIA [None]
  - HYPOXIA [None]
  - MEDICAL DEVICE COMPLICATION [None]
  - METABOLIC ACIDOSIS [None]
  - RESPIRATORY ACIDOSIS [None]
